FAERS Safety Report 5401348-4 (Version None)
Quarter: 2007Q3

REPORT INFORMATION
  Report Type: 
  Country: None (occurrence: None)
  Receive Date: 20070731
  Receipt Date: 20070725
  Transmission Date: 20080115
  Serious: Yes (Hospitalization)
  Sender: FDA-Public Use
  Company Number: A0666337A

PATIENT
  Age: 62 Year
  Sex: Female

DRUGS (11)
  1. REQUIP [Suspect]
     Indication: RESTLESS LEGS SYNDROME
     Dosage: 1.25MG FOUR TIMES PER DAY
     Route: 048
     Dates: start: 20070601
  2. GLUCOPHAGE [Concomitant]
  3. GLUCOTROL [Concomitant]
  4. JANUVIA [Concomitant]
  5. TOPROL-XL [Concomitant]
  6. COZAAR [Concomitant]
  7. LOTREL [Concomitant]
  8. COUMADIN [Concomitant]
  9. LAMICTAL [Concomitant]
  10. ABILIFY [Concomitant]
  11. ADVAIR DISKUS 100/50 [Concomitant]

REACTIONS (3)
  - PERICARDIAL EFFUSION [None]
  - PNEUMONIA [None]
  - SWELLING [None]
